FAERS Safety Report 4595637-3 (Version None)
Quarter: 2005Q1

REPORT INFORMATION
  Report Type: 
  Country: None (occurrence: None)
  Receive Date: 20050224
  Receipt Date: 20050214
  Transmission Date: 20050727
  Serious: Yes (Hospitalization, Other)
  Sender: FDA-Public Use
  Company Number: HQWYE707019JAN05

PATIENT
  Age: 50 Year
  Sex: Male

DRUGS (8)
  1. RAPAMUNE [Suspect]
     Indication: PROPHYLAXIS AGAINST TRANSPLANT REJECTION
     Dosage: 5 MG 1X PER 1 DAY ORAL
     Route: 048
     Dates: start: 20040929
  2. BACTRIM [Concomitant]
  3. RANITIDINE [Concomitant]
  4. PROPRANOLOL [Concomitant]
  5. CYCLOSPORINE [Concomitant]
  6. PREDNISONE [Concomitant]
  7. INSULIN [Concomitant]
  8. SIMVASTATIN [Concomitant]

REACTIONS (7)
  - BLOOD CREATININE INCREASED [None]
  - ESCHERICHIA INFECTION [None]
  - HYPERGLYCAEMIA [None]
  - POLYDIPSIA [None]
  - POLYURIA [None]
  - SECRETION DISCHARGE [None]
  - WEIGHT DECREASED [None]
